FAERS Safety Report 17196770 (Version 2)
Quarter: 2020Q1

REPORT INFORMATION
  Report Type: Report from Study
  Country: KR (occurrence: KR)
  Receive Date: 20191224
  Receipt Date: 20200117
  Transmission Date: 20200409
  Serious: Yes (Death, Other)
  Sender: FDA-Public Use
  Company Number: KR-BRISTOL-MYERS SQUIBB COMPANY-BMS-2019-107876

PATIENT
  Age: 86 Year
  Sex: Female
  Weight: 38.4 kg

DRUGS (1)
  1. APIXABAN [Suspect]
     Active Substance: APIXABAN
     Indication: CEREBROVASCULAR ACCIDENT PROPHYLAXIS
     Dosage: 2.5 MILLIGRAM, BID
     Route: 065
     Dates: start: 20181128, end: 20190426

REACTIONS (5)
  - Vomiting [Unknown]
  - Metabolic acidosis [Unknown]
  - Sepsis [Unknown]
  - Stupor [Unknown]
  - Pneumonia aspiration [Fatal]
